FAERS Safety Report 17054044 (Version 3)
Quarter: 2019Q4

REPORT INFORMATION
  Report Type: Report from Study
  Country: IE (occurrence: IE)
  Receive Date: 20191120
  Receipt Date: 20191202
  Transmission Date: 20200122
  Serious: Yes (Hospitalization)
  Sender: FDA-Public Use
  Company Number: IE-PFIZER INC-2019492382

PATIENT

DRUGS (11)
  1. LAXIDO [Concomitant]
     Active Substance: POLYETHYLENE GLYCOL 3350\POTASSIUM CHLORIDE\SODIUM BICARBONATE\SODIUM CHLORIDE
     Indication: CONSTIPATION
     Dosage: 1 DF, 1X/DAY (ONE SACHET, ONLY GIVE ONCE)
     Dates: start: 20191019, end: 20191019
  2. ONDANSETRON [Concomitant]
     Active Substance: ONDANSETRON
     Indication: PROPHYLAXIS OF NAUSEA AND VOMITING
     Dosage: 3.5 MG, 3X/DAY (EVERY 8 HOURS)
     Dates: start: 20191018
  3. PARACETAMOL [Concomitant]
     Active Substance: ACETAMINOPHEN
     Indication: PAIN
     Dosage: 250 MG, AS NEEDED
     Dates: start: 20191017
  4. MITOXANTRONE HCL [Suspect]
     Active Substance: MITOXANTRONE HYDROCHLORIDE
     Indication: ACUTE MYELOID LEUKAEMIA
     Dosage: 8.4 MG/M2, DAILY
     Route: 042
     Dates: start: 20191018, end: 20191022
  5. TAZOCIN [Concomitant]
     Active Substance: PIPERACILLIN SODIUM\TAZOBACTAM SODIUM
     Indication: FEBRILE NEUTROPENIA
     Dosage: 1.5 MG, 4X/DAY (EVERY SIX HOURS)
     Dates: start: 20191017, end: 20191024
  6. COTRIMOXAZOLE [Concomitant]
     Active Substance: SULFAMETHOXAZOLE\TRIMETHOPRIM
     Indication: PNEUMOCYSTIS JIROVECII PNEUMONIA
     Dosage: 240 MG, 2X/DAY (ONLY GIVEN SATURDAY AND SUNDAY)
     Dates: start: 20191019, end: 20191020
  7. GENTAMYCIN [Concomitant]
     Active Substance: GENTAMICIN
     Indication: FEBRILE NEUTROPENIA
     Dosage: 120 MG, 1X/DAY
     Dates: start: 20191019, end: 20191019
  8. ORAMORPH SR SUSTAINED RELEASE [Concomitant]
     Active Substance: MORPHINE SULFATE
     Indication: PAIN
     Dosage: 2 MG, AS NEEDED (EVERY 4-6 HOURS) (ALSO GIVE ON 26OCT2019)
     Dates: start: 20191018
  9. GEMTUZUMAB OZOGAMICIN [Suspect]
     Active Substance: GEMTUZUMAB OZOGAMICIN
     Indication: ACUTE MYELOID LEUKAEMIA
     Dosage: 2.0 MG, UNK (OTHER)
     Route: 042
     Dates: start: 20191021, end: 20191021
  10. FRUSEMIDE [FUROSEMIDE] [Concomitant]
     Active Substance: FUROSEMIDE
     Indication: FLUID OVERLOAD
     Dosage: 8 MG, 2X/DAY
     Dates: start: 20191019, end: 20191021
  11. AMBISOME [Concomitant]
     Active Substance: AMPHOTERICIN B
     Indication: ANTIFUNGAL PROPHYLAXIS
     Dosage: 17 MG, 1X/DAY
     Dates: start: 20191021, end: 20191025

REACTIONS (1)
  - Febrile neutropenia [Recovered/Resolved]

NARRATIVE: CASE EVENT DATE: 20191106
